FAERS Safety Report 5678212-9 (Version None)
Quarter: 2008Q1

REPORT INFORMATION
  Report Type: 
  Country: None (occurrence: None)
  Receive Date: 20080319
  Receipt Date: 20080304
  Transmission Date: 20080703
  Serious: Yes (Hospitalization)
  Sender: FDA-Public Use
  Company Number: GXKR2008GB02515

PATIENT
  Age: 56 Year
  Sex: Female

DRUGS (2)
  1. DIPHENHYDRAMINE (NGX)(DIPHENHYDRAMINE) UNKNOWN [Suspect]
     Dosage: UP TO 30 50 MG TABLETS DAILY
  2. ANTIPSYCHOTICS (NO INGREDIENTS/SUBSTANCES) [Concomitant]

REACTIONS (3)
  - DRUG ABUSE [None]
  - ILL-DEFINED DISORDER [None]
  - TREMOR [None]
